FAERS Safety Report 12643826 (Version 4)
Quarter: 2016Q4

REPORT INFORMATION
  Report Type: Report from Study
  Country: US (occurrence: US)
  Receive Date: 20160811
  Receipt Date: 20161019
  Transmission Date: 20170207
  Serious: Yes (Hospitalization)
  Sender: FDA-Public Use
  Company Number: US-EISAI MEDICAL RESEARCH-EC-2016-018099

PATIENT
  Age: 58 Year
  Sex: Female
  Weight: 99.24 kg

DRUGS (3)
  1. PEMBROLIZUMAB. [Suspect]
     Active Substance: PEMBROLIZUMAB
     Indication: TRIPLE NEGATIVE BREAST CANCER
     Route: 041
     Dates: start: 20160328, end: 20160620
  2. ERIBULIN [Suspect]
     Active Substance: ERIBULIN
     Indication: TRIPLE NEGATIVE BREAST CANCER
     Route: 041
     Dates: start: 20160328, end: 20160620
  3. ERIBULIN [Suspect]
     Active Substance: ERIBULIN
     Route: 041
     Dates: start: 20160801, end: 20160801

REACTIONS (3)
  - Septic shock [Recovered/Resolved]
  - Pneumonia [Recovered/Resolved]
  - Colitis [Recovering/Resolving]

NARRATIVE: CASE EVENT DATE: 20160625
